FAERS Safety Report 12157925 (Version 1)
Quarter: 2016Q1

REPORT INFORMATION
  Report Type: Spontaneous
  Country: US (occurrence: US)
  Receive Date: 20160308
  Receipt Date: 20160308
  Transmission Date: 20160526
  Serious: No
  Sender: FDA-Public Use
  Company Number: US-JNJFOC-20150121283

PATIENT
  Sex: Female
  Weight: 52 kg

DRUGS (5)
  1. MULTIVITAMINS [Concomitant]
     Active Substance: VITAMINS
  2. MAGNESIUM [Concomitant]
     Active Substance: MAGNESIUM
  3. LISINOPRIL. [Concomitant]
     Active Substance: LISINOPRIL
  4. IMBRUVICA [Suspect]
     Active Substance: IBRUTINIB
     Indication: CHRONIC LYMPHOCYTIC LEUKAEMIA
     Route: 048
     Dates: start: 20140415
  5. CALCIUM [Concomitant]
     Active Substance: CALCIUM

REACTIONS (1)
  - Neck mass [Not Recovered/Not Resolved]
